FAERS Safety Report 11564763 (Version 1)
Quarter: 2015Q3

REPORT INFORMATION
  Report Type: Report from Study
  Country: DE (occurrence: DE)
  Receive Date: 20150928
  Receipt Date: 20150928
  Transmission Date: 20151125
  Serious: Yes (Hospitalization)
  Sender: FDA-Public Use
  Company Number: DE-ABBVIE-15P-062-1468873-00

PATIENT
  Age: 65 Year
  Sex: Male

DRUGS (1)
  1. DUODOPA [Suspect]
     Active Substance: CARBIDOPA\LEVODOPA
     Indication: PARKINSON^S DISEASE
     Dosage: MD 6.0 ML, CRD 3.2 ML/H, ED 2.7 ML
     Route: 050
     Dates: start: 20121121

REACTIONS (2)
  - Device dislocation [Unknown]
  - Excessive granulation tissue [Not Recovered/Not Resolved]

NARRATIVE: CASE EVENT DATE: 201509
